FAERS Safety Report 16385377 (Version 1)
Quarter: 2019Q2

REPORT INFORMATION
  Report Type: Spontaneous
  Country: CA (occurrence: CA)
  Receive Date: 20190603
  Receipt Date: 20190603
  Transmission Date: 20190711
  Serious: Yes (Other)
  Sender: FDA-Public Use
  Company Number: CA-MYLANLABS-2019M1049368

PATIENT
  Age: 66 Year
  Sex: Female
  Weight: 88 kg

DRUGS (3)
  1. AMLODIPINE [Concomitant]
     Active Substance: AMLODIPINE BESYLATE
  2. HYDROCHLOROTHIAZIDE,LOSARTAN MYLAN [Suspect]
     Active Substance: HYDROCHLOROTHIAZIDE\LOSARTAN POTASSIUM
     Indication: HYPERTENSION
     Dosage: 1 DOSAGE FORM, QD
     Route: 048
  3. ELTROXIN [Concomitant]
     Active Substance: LEVOTHYROXINE

REACTIONS (2)
  - Blood pressure inadequately controlled [Recovered/Resolved]
  - Drug ineffective [Recovered/Resolved]
